FAERS Safety Report 21186216 (Version 3)
Quarter: 2022Q3

REPORT INFORMATION
  Report Type: Other
  Country: CO (occurrence: None)
  Receive Date: 20220808
  Receipt Date: 20220817
  Transmission Date: 20221027
  Serious: Yes (Other)
  Sender: FDA-Public Use
  Company Number: CO-ROCHE-3154942

PATIENT
  Age: 61 Year
  Sex: Male
  Weight: 68 kg

DRUGS (2)
  1. ALECTINIB [Suspect]
     Active Substance: ALECTINIB
     Indication: Non-small cell lung cancer
     Route: 048
     Dates: start: 20210708
  2. ALECTINIB [Concomitant]
     Active Substance: ALECTINIB

REACTIONS (1)
  - Sinusitis [Recovered/Resolved]

NARRATIVE: CASE EVENT DATE: 20220620
